FAERS Safety Report 7800729-9 (Version None)
Quarter: 2011Q4

REPORT INFORMATION
  Report Type: 
  Country: None (occurrence: None)
  Receive Date: 20111006
  Receipt Date: 20110930
  Transmission Date: 20120403
  Serious: Yes (Death, Hospitalization, Other)
  Sender: FDA-Public Use
  Company Number: PHEH2010US03509

PATIENT
  Sex: Male

DRUGS (7)
  1. ORUDIS [Concomitant]
     Dosage: 75 MG, Q8H
  2. IBUPROFEN (ADVIL) [Concomitant]
  3. NABUMETONE [Concomitant]
     Dosage: 500 MG, BID
  4. AMBIEN [Concomitant]
     Dosage: 5 MG, QHS
     Route: 048
  5. ZOMETA [Suspect]
  6. ROBAXIN [Concomitant]
     Dosage: 750 MG, Q6H
     Route: 048
  7. PERCOCET [Concomitant]
     Route: 048

REACTIONS (14)
  - LUMBAR SPINAL STENOSIS [None]
  - OSTEONECROSIS OF JAW [None]
  - INFECTION [None]
  - CARPAL TUNNEL SYNDROME [None]
  - PAIN IN EXTREMITY [None]
  - BACK PAIN [None]
  - DEFORMITY [None]
  - BONE NEOPLASM MALIGNANT [None]
  - PROSTATE CANCER METASTATIC [None]
  - PAIN [None]
  - OVERDOSE [None]
  - PARTNER STRESS [None]
  - INTERVERTEBRAL DISC DEGENERATION [None]
  - JOINT EFFUSION [None]
